FAERS Safety Report 19880477 (Version 1)
Quarter: 2021Q3

REPORT INFORMATION
  Report Type: Spontaneous
  Country: SK (occurrence: SK)
  Receive Date: 20210924
  Receipt Date: 20210924
  Transmission Date: 20211014
  Serious: Yes (Other)
  Sender: FDA-Public Use
  Company Number: SK-MYLANLABS-2021M1065204

PATIENT
  Sex: Male

DRUGS (5)
  1. FLUOROURACIL. [Suspect]
     Active Substance: FLUOROURACIL
     Indication: SALIVARY GLAND CANCER
     Dosage: UNK
  2. CARBOPLATIN. [Suspect]
     Active Substance: CARBOPLATIN
     Indication: SALIVARY GLAND CANCER
     Dosage: UNK
  3. DOXORUBICIN [Suspect]
     Active Substance: DOXORUBICIN
     Indication: SALIVARY GLAND CANCER
     Dosage: UNK
  4. CISPLATIN. [Suspect]
     Active Substance: CISPLATIN
     Indication: SALIVARY GLAND CANCER
     Dosage: UNK
  5. PACLITAXEL. [Suspect]
     Active Substance: PACLITAXEL
     Indication: SALIVARY GLAND CANCER
     Dosage: UNK

REACTIONS (2)
  - Disease progression [Unknown]
  - Treatment noncompliance [Unknown]
